FAERS Safety Report 14480197 (Version 1)
Quarter: 2018Q1

REPORT INFORMATION
  Report Type: Spontaneous
  Country: US (occurrence: US)
  Receive Date: 20180201
  Receipt Date: 20180201
  Transmission Date: 20180509
  Serious: Yes (Life-Threatening)
  Sender: FDA-Public Use
  Company Number: None

PATIENT
  Age: 47 Year
  Sex: Female

DRUGS (1)
  1. LIDOCAINE. [Suspect]
     Active Substance: LIDOCAINE
     Indication: NEURALGIA
     Route: 041

REACTIONS (5)
  - Hyperhidrosis [None]
  - Cardio-respiratory arrest [None]
  - Grimacing [None]
  - Blood pressure decreased [None]
  - Feeling drunk [None]

NARRATIVE: CASE EVENT DATE: 20170331
